FAERS Safety Report 14327520 (Version 1)
Quarter: 2017Q4

REPORT INFORMATION
  Report Type: Spontaneous
  Country: US (occurrence: US)
  Receive Date: 20171226
  Receipt Date: 20171226
  Transmission Date: 20180321
  Serious: Yes (Hospitalization)
  Sender: FDA-Public Use
  Company Number: None

PATIENT
  Age: 40 Year
  Sex: Female

DRUGS (2)
  1. CABERGOLINE. [Suspect]
     Active Substance: CABERGOLINE
     Indication: PITUITARY TUMOUR BENIGN
     Dosage: FREQUENCY - OTHER
     Route: 048
     Dates: start: 20160226
  2. CABERGOLINE. [Suspect]
     Active Substance: CABERGOLINE
     Indication: PROLACTIN-PRODUCING PITUITARY TUMOUR
     Dosage: FREQUENCY - OTHER
     Route: 048
     Dates: start: 20160226

REACTIONS (4)
  - Seizure [None]
  - Tremor [None]
  - Loss of consciousness [None]
  - Confusional state [None]

NARRATIVE: CASE EVENT DATE: 20170813
